FAERS Safety Report 4530747-8 (Version None)
Quarter: 2004Q4

REPORT INFORMATION
  Report Type: 
  Country: None (occurrence: None)
  Receive Date: 20041216
  Receipt Date: 20041202
  Transmission Date: 20050328
  Serious: Yes (Hospitalization)
  Sender: FDA-Public Use
  Company Number: 2004EU002156

PATIENT
  Age: 4 Year
  Sex: Male

DRUGS (13)
  1. PROGRAF [Suspect]
     Indication: LIVER TRANSPLANT
     Dosage: 1.30 MG , BID, ORAL
     Route: 048
     Dates: start: 20010721
  2. ACETAMINOPHEN [Concomitant]
     Dosage: 150 MG, QID, ORAL
     Route: 048
     Dates: start: 20041112
  3. BACTRIM [Suspect]
     Dosage: 80.00 MG, UID/QD, ORAL
     Route: 048
  4. EPRIL (ENALAPRIL MALEATE) [Suspect]
     Dosage: 1.40 MG , BID
     Dates: start: 20041112
  5. CELLCEPT [Concomitant]
  6. URSOFALK (URSODEOXYCHOLIC ACID0 [Concomitant]
  7. FLOVITE (FOLIC ACID) [Concomitant]
  8. CALCIMAGON (CALCIUM CARBONATE0 [Concomitant]
  9. ORANOL (VITAMINS NOS) [Concomitant]
  10. ROCALTROL [Concomitant]
  11. MAGNESIOCARD /GFR/MAGNESIUM ASPARTATE HYDROCHLORIDE) [Concomitant]
  12. ZOVIRAX (ACICLOVIR SODIUM) [Concomitant]
  13. PREDNISOLONE [Concomitant]

REACTIONS (3)
  - CHOLESTASIS [None]
  - HEPATIC NECROSIS [None]
  - LIVER TRANSPLANT REJECTION [None]
